FAERS Safety Report 20746429 (Version 1)
Quarter: 2022Q2

REPORT INFORMATION
  Report Type: Spontaneous
  Country: US (occurrence: US)
  Receive Date: 20220425
  Receipt Date: 20220425
  Transmission Date: 20220720
  Serious: No
  Sender: FDA-Public Use
  Company Number: US-PFIZER INC-202101023636

PATIENT
  Age: 67 Year
  Sex: Female
  Weight: 74.39 kg

DRUGS (1)
  1. DILANTIN [Suspect]
     Active Substance: PHENYTOIN
     Dosage: UNK

REACTIONS (3)
  - Toxicity to various agents [Unknown]
  - Idiopathic environmental intolerance [Unknown]
  - Hypersensitivity [Unknown]
